FAERS Safety Report 24555385 (Version 3)
Quarter: 2025Q1

REPORT INFORMATION
  Report Type: Spontaneous
  Country: JP (occurrence: JP)
  Receive Date: 20241028
  Receipt Date: 20250103
  Transmission Date: 20250409
  Serious: No
  Sender: PFIZER
  Company Number: JP-PFIZER INC-PV202400135932

PATIENT

DRUGS (1)
  1. GENOTROPIN [Suspect]
     Active Substance: SOMATROPIN
     Dosage: 0.8MG FOR 4 TIMES AND 0.6MG FOR 3 TIMES
     Route: 058

REACTIONS (7)
  - Injection site induration [Unknown]
  - Device difficult to use [Unknown]
  - Injection site haemorrhage [Unknown]
  - Injection site bruising [Unknown]
  - Device leakage [Unknown]
  - Injection site pain [Unknown]
  - Wrong technique in device usage process [Unknown]
